FAERS Safety Report 4429336-5 (Version None)
Quarter: 2004Q3

REPORT INFORMATION
  Report Type: 
  Country: None (occurrence: None)
  Receive Date: 20040819
  Receipt Date: 20040816
  Transmission Date: 20050211
  Serious: Yes (Hospitalization)
  Sender: FDA-Public Use
  Company Number: 200412663JP

PATIENT
  Age: 62 Year
  Sex: Male

DRUGS (1)
  1. TAXOTERE [Suspect]
     Indication: OSTEITIS DEFORMANS
     Route: 041
     Dates: start: 20040701, end: 20040701

REACTIONS (5)
  - BONE MARROW DEPRESSION [None]
  - CONDITION AGGRAVATED [None]
  - DISSEMINATED INTRAVASCULAR COAGULATION [None]
  - OSTEITIS DEFORMANS [None]
  - RESPIRATORY FAILURE [None]
